FAERS Safety Report 5499748-X (Version None)
Quarter: 2007Q4

REPORT INFORMATION
  Report Type: 
  Country: None (occurrence: None)
  Receive Date: 20071026
  Receipt Date: 20070817
  Transmission Date: 20080405
  Serious: No
  Sender: FDA-Public Use
  Company Number: US-BOEHRINGER INGELHEIM PHARMACEUTICALS, INC.-2006-BP-00420BP

PATIENT
  Sex: Male

DRUGS (16)
  1. MIRAPEX [Suspect]
     Indication: PARKINSON'S DISEASE
     Route: 048
     Dates: start: 19991020, end: 20050115
  2. REQUIP [Concomitant]
     Indication: PARKINSON'S DISEASE
     Dates: start: 19990806, end: 19991020
  3. REQUIP [Concomitant]
     Dates: start: 20030509, end: 20050530
  4. DOMPERIDONE [Concomitant]
     Indication: PARKINSON'S DISEASE
     Dates: start: 19991020, end: 20040920
  5. LEXAPRO [Concomitant]
     Dates: start: 20060119, end: 20060219
  6. PERMAX [Concomitant]
     Dates: start: 20021009, end: 20021025
  7. PROPRANOLOL [Concomitant]
     Dates: start: 19990220, end: 19991020
  8. SINEMET [Concomitant]
     Dates: start: 20050211, end: 20050720
  9. SINEMET [Concomitant]
     Dates: start: 20050720
  10. TRIHEXYPHENIDYL HCL [Concomitant]
     Dates: start: 20001014, end: 20010417
  11. TRIHEXYPHENIDYL HCL [Concomitant]
     Dates: start: 20010418, end: 20030620
  12. ZOLOFT [Concomitant]
     Dates: start: 20051110, end: 20060119
  13. HYDROCODONE BITARTRATE AND ACETAMINOPHEN [Concomitant]
     Dates: start: 20051206
  14. ACETAMINOPHEN AND HYDROCODONE BITARTRATE [Concomitant]
     Dates: start: 20050826
  15. ACETAMINOPHEN AND HYDROCODONE BITARTRATE [Concomitant]
     Dates: start: 20050127
  16. VEETIDS [Concomitant]
     Dates: start: 20000104, end: 20000112

REACTIONS (6)
  - ALCOHOLISM [None]
  - ANXIETY [None]
  - DEPRESSION [None]
  - HYPERSEXUALITY [None]
  - OBSESSIVE-COMPULSIVE DISORDER [None]
  - PATHOLOGICAL GAMBLING [None]
